FAERS Safety Report 21925414 (Version 4)
Quarter: 2024Q1

REPORT INFORMATION
  Report Type: Report from Study
  Country: CO (occurrence: CO)
  Receive Date: 20230130
  Receipt Date: 20240314
  Transmission Date: 20240410
  Serious: Yes (Hospitalization)
  Sender: FDA-Public Use
  Company Number: CO-002147023-NVSC2023CO018803

PATIENT
  Age: 40 Year
  Sex: Female
  Weight: 87 kg

DRUGS (6)
  1. KISQALI [Suspect]
     Active Substance: RIBOCICLIB
     Indication: Breast cancer metastatic
     Dosage: TILL JAN (YEAR UNKNOWN)
     Route: 048
     Dates: start: 20221105
  2. KISQALI [Suspect]
     Active Substance: RIBOCICLIB
     Indication: Hormone receptor positive HER2 negative breast cancer
     Dosage: DOSE CHANGE TO 200 MG, QD, FROM JAN
     Route: 048
  3. KISQALI [Suspect]
     Active Substance: RIBOCICLIB
     Dosage: 3 DOSAGE FORM (3 TABLETS), QD
     Route: 048
     Dates: start: 2022
  4. KISQALI [Suspect]
     Active Substance: RIBOCICLIB
     Dosage: 1 DOSAGE FORM (1 TABLET), QD
     Route: 048
     Dates: start: 2022
  5. FEMARA [Suspect]
     Active Substance: LETROZOLE
     Indication: Breast cancer
     Dosage: UNK
     Route: 048
  6. FEMARA [Suspect]
     Active Substance: LETROZOLE
     Dosage: 1 DOSAGE FORM, QD
     Route: 048
     Dates: start: 2022

REACTIONS (3)
  - Thrombosis [Recovered/Resolved]
  - Inflammation [Recovered/Resolved]
  - Pain in extremity [Recovered/Resolved]

NARRATIVE: CASE EVENT DATE: 20230101
